FAERS Safety Report 7053100-4 (Version None)
Quarter: 2010Q4

REPORT INFORMATION
  Report Type: 
  Country: None (occurrence: None)
  Receive Date: 20101020
  Receipt Date: 20101014
  Transmission Date: 20110411
  Serious: Yes (Other)
  Sender: FDA-Public Use
  Company Number: US-BAYER-201020715NA

PATIENT
  Age: 21 Year
  Sex: Female
  Weight: 75 kg

DRUGS (4)
  1. YAZ [Suspect]
     Indication: DYSMENORRHOEA
     Route: 048
     Dates: start: 20091201, end: 20100409
  2. IBUPROFEN [Concomitant]
     Dosage: NO KNOWN USE AT THE TIME OF CVA
  3. DARVOCET-N 100 [Concomitant]
     Dosage: NO KNOWN USE AT THE TIME OF CVA
  4. ASPIRIN [Concomitant]
     Dosage: LOW DOSE

REACTIONS (3)
  - APHASIA [None]
  - CEREBROVASCULAR ACCIDENT [None]
  - MONOPLEGIA [None]
